FAERS Safety Report 6688371-7 (Version None)
Quarter: 2010Q2

REPORT INFORMATION
  Report Type: 
  Country: None (occurrence: None)
  Receive Date: 20100420
  Receipt Date: 20100412
  Transmission Date: 20101027
  Serious: Yes (Hospitalization)
  Sender: FDA-Public Use
  Company Number: PHHO2010ES04252

PATIENT
  Sex: Male

DRUGS (3)
  1. AEB071 AEB+GELCAP [Suspect]
     Indication: RENAL TRANSPLANT
     Dosage: 200 MG/12H
     Route: 048
     Dates: start: 20091210
  2. CERTICAN [Suspect]
     Indication: RENAL TRANSPLANT
     Dosage: 0.05MG/12H
     Route: 048
     Dates: start: 20091210
  3. PREDNISONE [Concomitant]

REACTIONS (2)
  - LYMPHOEDEMA [None]
  - OEDEMA PERIPHERAL [None]
